FAERS Safety Report 7990627-2 (Version None)
Quarter: 2011Q4

REPORT INFORMATION
  Report Type: 
  Country: None (occurrence: None)
  Receive Date: 20111219
  Receipt Date: 20110608
  Transmission Date: 20120403
  Serious: No
  Sender: FDA-Public Use
  Company Number: US-ASTRAZENECA-2011SE34992

PATIENT
  Age: 62 Year
  Sex: Male
  Weight: 81.6 kg

DRUGS (4)
  1. RTHYMAL [Concomitant]
     Indication: ARRHYTHMIA
  2. COUMADIN [Concomitant]
  3. CRESTOR [Suspect]
     Route: 048
  4. TOPROL-XL [Concomitant]
     Indication: ARRHYTHMIA

REACTIONS (1)
  - ERECTILE DYSFUNCTION [None]
